FAERS Safety Report 10072041 (Version 1)
Quarter: 2014Q2

REPORT INFORMATION
  Report Type: Spontaneous
  Country: HK (occurrence: None)
  Receive Date: 20140409
  Receipt Date: 20140409
  Transmission Date: 20141212
  Serious: Yes (Hospitalization, Other)
  Sender: FDA-Public Use
  Company Number: NSR_01536_2014

PATIENT
  Age: 40 Year
  Sex: Male

DRUGS (3)
  1. ALLOPURINOL (ALLOPURINOL) [Suspect]
     Indication: PRODUCT USED FOR UNKNOWN INDICATION
     Dosage: (DF)
  2. INDOMETHACIN [Suspect]
     Indication: PRODUCT USED FOR UNKNOWN INDICATION
     Dosage: (DF)
  3. COLCHICINE (COLCHICINE) [Suspect]
     Indication: PRODUCT USED FOR UNKNOWN INDICATION
     Dosage: (DF)

REACTIONS (4)
  - Drug reaction with eosinophilia and systemic symptoms [None]
  - Dermatitis exfoliative [None]
  - Face oedema [None]
  - Hepatitis [None]
